FAERS Safety Report 10784259 (Version 1)
Quarter: 2015Q1

REPORT INFORMATION
  Report Type: Spontaneous
  Country: US (occurrence: US)
  Receive Date: 20150211
  Receipt Date: 20150211
  Transmission Date: 20150721
  Serious: No
  Sender: FDA-Public Use
  Company Number: US-GLAXOSMITHKLINE-A1020052A

PATIENT

DRUGS (4)
  1. BACLOFEN. [Concomitant]
     Active Substance: BACLOFEN
  2. HYDROCODONE [Concomitant]
     Active Substance: HYDROCODONE
  3. CIPROFLOXACIN. [Concomitant]
     Active Substance: CIPROFLOXACIN
  4. GABAPENTIN ENACARBIL PROLONGED-RELEASE TABLET [Suspect]
     Active Substance: GABAPENTIN ENACARBIL
     Indication: MUSCLE SPASMS
     Route: 048
     Dates: start: 201212, end: 201212

REACTIONS (4)
  - Discomfort [Unknown]
  - Autoscopy [Unknown]
  - Feeling abnormal [Recovered/Resolved]
  - Tension [Unknown]

NARRATIVE: CASE EVENT DATE: 201212
